FAERS Safety Report 23297202 (Version 1)
Quarter: 2023Q4

REPORT INFORMATION
  Report Type: Spontaneous
  Country: US (occurrence: None)
  Receive Date: 20231214
  Receipt Date: 20231214
  Transmission Date: 20240110
  Serious: No
  Sender: FDA-Public Use
  Company Number: None

PATIENT
  Sex: Female

DRUGS (2)
  1. GLATOPA [Suspect]
     Active Substance: GLATIRAMER ACETATE
     Indication: Multiple sclerosis
     Dosage: 20MG ONCE DAILY SC
     Route: 058
     Dates: start: 202002
  2. DALFA VIPRIDINE ER [Concomitant]

REACTIONS (1)
  - Drug ineffective [None]
